FAERS Safety Report 5176260-9 (Version None)
Quarter: 2006Q4

REPORT INFORMATION
  Report Type: 
  Country: None (occurrence: None)
  Receive Date: 20061215
  Receipt Date: 20061129
  Transmission Date: 20070319
  Serious: Yes (Hospitalization)
  Sender: FDA-Public Use
  Company Number: US-AMGEN-US201674

PATIENT
  Sex: Female
  Weight: 60.8 kg

DRUGS (22)
  1. NEULASTA [Suspect]
     Indication: CHEMOTHERAPY
     Route: 058
     Dates: start: 20061121
  2. TAXOTERE [Concomitant]
     Route: 065
     Dates: start: 20061120
  3. TACROLIMUS [Concomitant]
     Route: 065
  4. AZATHIOPRINE [Concomitant]
     Route: 065
  5. PREDNISONE TAB [Concomitant]
     Route: 065
  6. ZETIA [Concomitant]
     Route: 065
  7. AMBIEN [Concomitant]
     Route: 065
  8. PRAVACHOL [Concomitant]
     Route: 065
  9. NORVASC [Concomitant]
     Route: 065
  10. ENALAPRIL MALEATE [Concomitant]
     Route: 065
  11. TRIMETHOPRIM [Concomitant]
     Route: 065
  12. SULFAMETHOXAZOLE + TRIMETHOPRIM [Concomitant]
     Route: 065
  13. ISOSORBIDE [Concomitant]
     Route: 065
  14. IMDUR [Concomitant]
     Route: 065
  15. PREVACID [Concomitant]
     Route: 065
  16. ASPIRIN [Concomitant]
     Route: 065
  17. VITAMIN CAP [Concomitant]
     Route: 065
  18. CALCIUM [Concomitant]
     Route: 065
  19. FOSAMAX [Concomitant]
     Route: 065
  20. MAGNESIUM [Concomitant]
     Route: 065
  21. ASCORBIC ACID [Concomitant]
     Route: 065
  22. CYTOXAN [Concomitant]
     Route: 065

REACTIONS (6)
  - ABDOMINAL PAIN [None]
  - ANAEMIA [None]
  - DYSPNOEA [None]
  - ILEAL ULCER [None]
  - LEUKOCYTOSIS [None]
  - URINARY TRACT INFECTION [None]
